FAERS Safety Report 4426445-1 (Version None)
Quarter: 2004Q3

REPORT INFORMATION
  Report Type: 
  Country: None (occurrence: None)
  Receive Date: 20040815
  Receipt Date: 20040719
  Transmission Date: 20050211
  Serious: Yes (Hospitalization, Disabling)
  Sender: FDA-Public Use
  Company Number: US-MERCK-0407USA01622

PATIENT
  Age: 81 Year
  Sex: Female
  Weight: 70 kg

DRUGS (10)
  1. BUMEX [Concomitant]
     Route: 048
  2. CELEBREX [Concomitant]
     Route: 048
  3. FLOVENT [Concomitant]
     Route: 055
  4. LASIX [Concomitant]
     Indication: CARDIAC FAILURE CONGESTIVE
     Route: 065
  5. SYNTHROID [Concomitant]
     Route: 065
  6. PRILOSEC [Concomitant]
     Route: 048
  7. ACCUPRIL [Concomitant]
     Route: 048
  8. MIACALCIN [Concomitant]
     Route: 055
  9. SEREVENT [Concomitant]
     Route: 065
  10. ZOCOR [Suspect]
     Indication: BLOOD CHOLESTEROL INCREASED
     Route: 048
     Dates: start: 20000101, end: 20040720

REACTIONS (4)
  - ACUTE PRERENAL FAILURE [None]
  - ASTHENIA [None]
  - CARDIAC FAILURE CONGESTIVE [None]
  - PAIN IN EXTREMITY [None]
